FAERS Safety Report 24465776 (Version 1)
Quarter: 2024Q4

REPORT INFORMATION
  Report Type: Spontaneous
  Country: US (occurrence: US)
  Receive Date: 20241018
  Receipt Date: 20241018
  Transmission Date: 20250114
  Serious: No
  Sender: ROCHE
  Company Number: US-ROCHE-3543699

PATIENT
  Age: 36 Year
  Sex: Female

DRUGS (2)
  1. XOLAIR [Suspect]
     Active Substance: OMALIZUMAB
     Indication: Idiopathic urticaria
     Dosage: STRENGTH :150MG/ML
     Route: 058
  2. XOLAIR [Suspect]
     Active Substance: OMALIZUMAB

REACTIONS (5)
  - No adverse event [Unknown]
  - Off label use [Unknown]
  - Syringe issue [Unknown]
  - Underdose [Unknown]
  - Syringe issue [Unknown]
